FAERS Safety Report 19933567 (Version 1)
Quarter: 2021Q4

REPORT INFORMATION
  Report Type: Spontaneous
  Country: IE (occurrence: IE)
  Receive Date: 20211008
  Receipt Date: 20211008
  Transmission Date: 20220303
  Serious: Yes (Other)
  Sender: FDA-Public Use
  Company Number: None

PATIENT
  Sex: Female

DRUGS (3)
  1. APIXABAN [Suspect]
     Active Substance: APIXABAN
     Indication: Product used for unknown indication
     Dosage: 5 MILLIGRAM, BID
  2. LEVOTHYROXINE [Concomitant]
     Active Substance: LEVOTHYROXINE
     Dosage: UNK [100 (NO UNITS PROVIDED)]
  3. LOSARTAN [Concomitant]
     Active Substance: LOSARTAN
     Dosage: UNK (50 (NO UNITS PROVIDED))

REACTIONS (1)
  - Transient ischaemic attack [Recovered/Resolved]
